FAERS Safety Report 13424638 (Version 2)
Quarter: 2017Q2

REPORT INFORMATION
  Report Type: Spontaneous
  Country: JP (occurrence: JP)
  Receive Date: 20170410
  Receipt Date: 20170414
  Transmission Date: 20170830
  Serious: Yes (Other)
  Sender: FDA-Public Use
  Company Number: PHJP2017JP011737

PATIENT

DRUGS (1)
  1. SANDIMMUN INFUSION [Suspect]
     Active Substance: CYCLOSPORINE
     Indication: PRODUCT USED FOR UNKNOWN INDICATION
     Dosage: UNK
     Route: 041

REACTIONS (4)
  - Internal haemorrhage [Recovering/Resolving]
  - Disseminated intravascular coagulation [Unknown]
  - Restlessness [Unknown]
  - Infusion site extravasation [Unknown]
